FAERS Safety Report 9302344 (Version 2)
Quarter: 2013Q2

REPORT INFORMATION
  Report Type: Spontaneous
  Country: GB (occurrence: None)
  Receive Date: 20130517
  Receipt Date: 20130614
  Transmission Date: 20140414
  Serious: Yes (Other)
  Sender: FDA-Public Use
  Company Number: GER/UKI/13/0029576

PATIENT
  Age: 73 Year
  Sex: Female
  Weight: 75.5 kg

DRUGS (2)
  1. ATORVASTATIN [Suspect]
     Indication: HYPERLIPIDAEMIA
     Route: 048
     Dates: start: 20120704, end: 20130103
  2. TRAMADOL [Suspect]
     Indication: PRODUCT USED FOR UNKNOWN INDICATION
     Dates: start: 201304

REACTIONS (5)
  - Drug-induced liver injury [None]
  - Vomiting [None]
  - Diarrhoea [None]
  - Dizziness [None]
  - Liver function test abnormal [None]
